FAERS Safety Report 24691317 (Version 1)
Quarter: 2024Q4

REPORT INFORMATION
  Report Type: Spontaneous
  Country: US (occurrence: US)
  Receive Date: 20241203
  Receipt Date: 20241203
  Transmission Date: 20250114
  Serious: Yes (Other)
  Sender: AMGEN
  Company Number: US-AMGEN-USASP2024234641

PATIENT

DRUGS (4)
  1. TALIMOGENE LAHERPAREPVEC [Suspect]
     Active Substance: TALIMOGENE LAHERPAREPVEC
     Indication: Metastatic malignant melanoma
     Dosage: 10^6 PLAQUE-FORMING UNITS (PFU) PER ML. LOADING DOSE
     Route: 026
  2. TALIMOGENE LAHERPAREPVEC [Suspect]
     Active Substance: TALIMOGENE LAHERPAREPVEC
     Dosage: UNK, 10^8 PLAQUE-FORMING UNITS (PFU) PER ML, LOADING DOSE
     Route: 026
  3. TALIMOGENE LAHERPAREPVEC [Suspect]
     Active Substance: TALIMOGENE LAHERPAREPVEC
     Dosage: UNK, Q2WK, EVERY 2 WEEKS, TOTAL 8.7 ML TILL 14TH INJECTION OF TVEC
     Route: 026
  4. IMIQUIMOD [Suspect]
     Active Substance: IMIQUIMOD
     Indication: Metastatic malignant melanoma
     Dosage: UNK UNK, CYCLICAL, AFTER 2 CYCLE OF TVEC
     Route: 061

REACTIONS (4)
  - Metastatic malignant melanoma [Unknown]
  - Fatigue [Unknown]
  - Injection site pain [Unknown]
  - Influenza like illness [Unknown]
